FAERS Safety Report 17839002 (Version 1)
Quarter: 2020Q2

REPORT INFORMATION
  Report Type: Spontaneous
  Country: CA (occurrence: CA)
  Receive Date: 20200529
  Receipt Date: 20200529
  Transmission Date: 20200714
  Serious: Yes (Hospitalization)
  Sender: FDA-Public Use
  Company Number: CA-ROCHE-2608317

PATIENT
  Age: 48 Year
  Sex: Male

DRUGS (20)
  1. ACETAMINOPHEN. [Concomitant]
     Active Substance: ACETAMINOPHEN
     Indication: PREMEDICATION
     Route: 048
  2. PREDNISONE. [Suspect]
     Active Substance: PREDNISONE
     Indication: PRODUCT USED FOR UNKNOWN INDICATION
     Route: 065
  3. CALCIUM CARBONATE. [Concomitant]
     Active Substance: CALCIUM CARBONATE
  4. CICLOSPORIN [Concomitant]
     Active Substance: CYCLOSPORINE
  5. VITAMIN C [Concomitant]
     Active Substance: ASCORBIC ACID
  6. DIAZEPAM. [Concomitant]
     Active Substance: DIAZEPAM
  7. ISOPHANE INSULIN [Concomitant]
     Active Substance: INSULIN NOS
  8. QUETIAPINE. [Concomitant]
     Active Substance: QUETIAPINE
     Route: 065
  9. RANITIDINE. [Concomitant]
     Active Substance: RANITIDINE
  10. RITUXIMAB. [Suspect]
     Active Substance: RITUXIMAB
     Indication: PEMPHIGOID
     Route: 042
  11. MYCOPHENOLATE MOFETIL HYDROCHLORIDE [Suspect]
     Active Substance: MYCOPHENOLATE MOFETIL HYDROCHLORIDE
     Indication: PEMPHIGOID
     Route: 065
  12. DIPHENHYDRAMINE. [Concomitant]
     Active Substance: DIPHENHYDRAMINE
     Indication: PREMEDICATION
     Route: 048
  13. GLYBURIDE. [Concomitant]
     Active Substance: GLYBURIDE
     Route: 065
  14. INSULIN [Concomitant]
     Active Substance: INSULIN NOS
     Route: 048
  15. ALENDRONATE SODIUM. [Concomitant]
     Active Substance: ALENDRONATE SODIUM
  16. METHOTREXATE. [Suspect]
     Active Substance: METHOTREXATE
     Indication: PRODUCT USED FOR UNKNOWN INDICATION
     Route: 065
  17. FOLIC ACID. [Concomitant]
     Active Substance: FOLIC ACID
  18. SOLU-MEDROL [Concomitant]
     Active Substance: METHYLPREDNISOLONE SODIUM SUCCINATE
     Indication: PREMEDICATION
     Route: 042
  19. ZANTAC [Concomitant]
     Active Substance: RANITIDINE HYDROCHLORIDE
  20. METFORMIN [Concomitant]
     Active Substance: METFORMIN HYDROCHLORIDE
     Route: 065

REACTIONS (17)
  - Blister infected [Not Recovered/Not Resolved]
  - Pain [Not Recovered/Not Resolved]
  - Pemphigoid [Not Recovered/Not Resolved]
  - Pruritus [Not Recovered/Not Resolved]
  - Restlessness [Not Recovered/Not Resolved]
  - Anxiety [Not Recovered/Not Resolved]
  - Malaise [Not Recovered/Not Resolved]
  - Poor dental condition [Not Recovered/Not Resolved]
  - Treatment failure [Unknown]
  - Blood glucose increased [Not Recovered/Not Resolved]
  - Intentional product use issue [Unknown]
  - Dermatitis bullous [Not Recovered/Not Resolved]
  - Infection [Not Recovered/Not Resolved]
  - Therapy non-responder [Unknown]
  - Eczema [Not Recovered/Not Resolved]
  - Off label use [Unknown]
  - Abdominal distension [Not Recovered/Not Resolved]
